FAERS Safety Report 8282913-6 (Version None)
Quarter: 2012Q2

REPORT INFORMATION
  Report Type: 
  Country: None (occurrence: None)
  Receive Date: 20120413
  Receipt Date: 20120404
  Transmission Date: 20120825
  Serious: Yes (Hospitalization)
  Sender: FDA-Public Use
  Company Number: JP-ASTRAZENECA-2012SE22688

PATIENT
  Age: 92 Year
  Sex: Female

DRUGS (5)
  1. CALBLOCK [Concomitant]
     Route: 065
  2. NEXIUM [Suspect]
     Indication: GASTROOESOPHAGEAL REFLUX DISEASE
     Route: 048
     Dates: start: 20120116, end: 20120131
  3. PERINDOPRIL ERBUMINE [Concomitant]
     Route: 065
  4. SERMION [Concomitant]
     Route: 065
  5. HALCION [Concomitant]
     Route: 065

REACTIONS (1)
  - INTERSTITIAL LUNG DISEASE [None]
